FAERS Safety Report 6847435-5 (Version None)
Quarter: 2010Q3

REPORT INFORMATION
  Report Type: 
  Country: None (occurrence: None)
  Receive Date: 20100716
  Receipt Date: 20100713
  Transmission Date: 20110219
  Serious: Yes (Death)
  Sender: FDA-Public Use
  Company Number: US-ASTRAZENECA-2008UW20440

PATIENT
  Sex: Female
  Weight: 104.3 kg

DRUGS (4)
  1. SEROQUEL [Suspect]
     Indication: SLEEP DISORDER
     Dosage: 300-600 MG
     Route: 048
     Dates: start: 20061028
  2. SEROQUEL [Suspect]
     Indication: PSYCHOTIC DISORDER
     Dosage: 300-600 MG
     Route: 048
     Dates: start: 20061028
  3. REMERON [Concomitant]
     Dates: start: 20070101
  4. ROZEREM [Concomitant]
     Dates: start: 20070101

REACTIONS (2)
  - DEATH [None]
  - ILL-DEFINED DISORDER [None]
